FAERS Safety Report 5654568-8 (Version None)
Quarter: 2008Q1

REPORT INFORMATION
  Report Type: 
  Country: None (occurrence: None)
  Receive Date: 20080307
  Receipt Date: 20080303
  Transmission Date: 20080703
  Serious: Yes (Other)
  Sender: FDA-Public Use
  Company Number: US-BRISTOL-MYERS SQUIBB COMPANY-14100200

PATIENT
  Age: 28 Year
  Sex: Female

DRUGS (6)
  1. GLUCOVANCE [Suspect]
     Indication: DIABETES MELLITUS
     Dates: start: 20020101
  2. CRESTOR [Suspect]
     Indication: BLOOD CHOLESTEROL INCREASED
     Dates: start: 20060101
  3. REBIF [Suspect]
     Indication: MULTIPLE SCLEROSIS
     Route: 058
     Dates: start: 20060426, end: 20070526
  4. NEURONTIN [Suspect]
     Indication: MULTIPLE SCLEROSIS
     Dates: start: 20060101
  5. OXYBUTYNIN CHLORIDE [Suspect]
     Indication: INCONTINENCE
     Dates: start: 20060101
  6. PROVIGIL [Suspect]
     Indication: FATIGUE
     Dates: start: 20060101

REACTIONS (2)
  - PREGNANCY [None]
  - PREMATURE LABOUR [None]
